FAERS Safety Report 8879188 (Version 1)
Quarter: 2012Q4

REPORT INFORMATION
  Report Type: Spontaneous
  Country: DE (occurrence: None)
  Receive Date: 20121026
  Receipt Date: 20121026
  Transmission Date: 20130627
  Serious: Yes (Hospitalization, Other)
  Sender: FDA-Public Use
  Company Number: 2012/157

PATIENT
  Age: 58 Year
  Sex: Female
  Weight: 97.8 kg

DRUGS (1)
  1. OLANZAPINE [Suspect]
     Indication: CENTRAL NERVOUS SYSTEM LYMPHOMA

REACTIONS (3)
  - Cerebral haemorrhage [None]
  - Cerebral infarction [None]
  - Obsessive-compulsive disorder [None]
